FAERS Safety Report 6901468-9 (Version None)
Quarter: 2010Q3

REPORT INFORMATION
  Report Type: 
  Country: None (occurrence: None)
  Receive Date: 20100803
  Receipt Date: 20080201
  Transmission Date: 20110219
  Serious: No
  Sender: FDA-Public Use
  Company Number: US-PFIZER INC-2008008274

PATIENT
  Sex: Female
  Weight: 62.6 kg

DRUGS (16)
  1. LYRICA [Suspect]
     Indication: SPINAL COLUMN STENOSIS
     Dates: start: 20080121, end: 20080124
  2. LYRICA [Suspect]
     Indication: NERVE INJURY
  3. ALPRAZOLAM [Suspect]
     Indication: ANXIETY
  4. ELMIRON [Concomitant]
     Indication: BLADDER DISORDER
  5. ALL OTHER THERAPEUTIC PRODUCTS [Concomitant]
  6. DETROL LA [Concomitant]
     Indication: BLADDER DISORDER
  7. IBUPROFEN [Concomitant]
  8. ADVAIR DISKUS 100/50 [Concomitant]
     Indication: DIAPHRAGMATIC DISORDER
  9. ALBUTEROL [Concomitant]
     Indication: DIAPHRAGMATIC DISORDER
  10. IPRATROPIUM BROMIDE [Concomitant]
     Indication: DIAPHRAGMATIC DISORDER
  11. OXYCONTIN [Concomitant]
  12. LIDODERM [Concomitant]
  13. ASCORBIC ACID [Concomitant]
  14. MULTI-VITAMINS [Concomitant]
  15. PERCOCET [Concomitant]
  16. FEMHRT [Concomitant]
     Indication: MENOPAUSAL SYMPTOMS

REACTIONS (3)
  - ANXIETY [None]
  - FATIGUE [None]
  - WITHDRAWAL SYNDROME [None]
